FAERS Safety Report 5066211-X (Version None)
Quarter: 2006Q3

REPORT INFORMATION
  Report Type: 
  Country: None (occurrence: None)
  Receive Date: 20060801
  Receipt Date: 20060720
  Transmission Date: 20061208
  Serious: Yes (Other)
  Sender: FDA-Public Use
  Company Number: US-JNJFOC-20060704218

PATIENT
  Sex: Male

DRUGS (1)
  1. REMICADE [Suspect]
     Indication: SCLERODERMA
     Route: 042

REACTIONS (1)
  - T-CELL LYMPHOMA [None]
